FAERS Safety Report 12432525 (Version 1)
Quarter: 2016Q2

REPORT INFORMATION
  Report Type: Spontaneous
  Country: FR (occurrence: FR)
  Receive Date: 20160603
  Receipt Date: 20160603
  Transmission Date: 20160815
  Serious: Yes (Hospitalization)
  Sender: FDA-Public Use
  Company Number: FR-SA-2016SA103503

PATIENT
  Age: 43 Year
  Sex: Female
  Weight: 52 kg

DRUGS (3)
  1. PLAQUENIL [Concomitant]
     Active Substance: HYDROXYCHLOROQUINE SULFATE
     Route: 065
  2. RIFADINE [Suspect]
     Active Substance: RIFAMPIN
     Route: 048
     Dates: start: 20151120, end: 20151212
  3. RIMIFON [Suspect]
     Active Substance: ISONIAZID
     Route: 048
     Dates: start: 20151120, end: 20151212

REACTIONS (2)
  - Myalgia [Recovering/Resolving]
  - Hepatocellular injury [Recovering/Resolving]

NARRATIVE: CASE EVENT DATE: 20151205
